FAERS Safety Report 15132081 (Version 1)
Quarter: 2018Q3

REPORT INFORMATION
  Report Type: Spontaneous
  Country: US (occurrence: US)
  Receive Date: 20180711
  Receipt Date: 20180711
  Transmission Date: 20181010
  Serious: No
  Sender: FDA-Public Use
  Company Number: US-GALDERMA-US17012357

PATIENT
  Age: 18 Year
  Sex: Female

DRUGS (5)
  1. DIFFERIN GEL [Suspect]
     Active Substance: ADAPALENE
     Indication: ACNE
     Dosage: 0.1%
     Route: 061
     Dates: start: 20170930, end: 20171130
  2. CETAPHIL MOISTURIZING LOTION (DIFFERIN BALANCING MOISTURIZER) [Suspect]
     Active Substance: COSMETICS
     Indication: ACNE
     Route: 061
  3. NIACINAMIDE [Concomitant]
     Active Substance: NIACINAMIDE
     Indication: THERAPEUTIC SKIN CARE TOPICAL
  4. CAUDALIE RADIANCE SERUM [Concomitant]
     Indication: THERAPEUTIC SKIN CARE TOPICAL
  5. KIEL^S MIDNIGHT RECOVERY OIL [Concomitant]
     Indication: THERAPEUTIC SKIN CARE TOPICAL

REACTIONS (5)
  - Erythema [Not Recovered/Not Resolved]
  - Drug ineffective [Recovered/Resolved]
  - Acne [Not Recovered/Not Resolved]
  - Skin fragility [Not Recovered/Not Resolved]
  - Skin irritation [Not Recovered/Not Resolved]

NARRATIVE: CASE EVENT DATE: 20170930
